FAERS Safety Report 4933396-2 (Version None)
Quarter: 2006Q1

REPORT INFORMATION
  Report Type: 
  Country: None (occurrence: None)
  Receive Date: 20060301
  Receipt Date: 20060215
  Transmission Date: 20060701
  Serious: Yes (Death)
  Sender: FDA-Public Use
  Company Number: 8015077

PATIENT
  Age: 2 Month

DRUGS (4)
  1. DEXTROMETHORPHAN HYDROBROMIDE [Suspect]
     Dosage: PO
     Route: 048
  2. EPHEDRINE SUL CAP [Suspect]
     Dosage: PO
     Route: 048
  3. PSEUDOEPHEDRINE HCL [Suspect]
     Dosage: PO
     Route: 048
  4. CARBINOXAMINE MALEATE [Suspect]
     Dosage: PO
     Route: 048

REACTIONS (4)
  - DRUG TOXICITY [None]
  - HEPATOTOXICITY [None]
  - LOSS OF CONSCIOUSNESS [None]
  - VITREOUS DISORDER [None]
